FAERS Safety Report 5166696-4 (Version None)
Quarter: 2006Q4

REPORT INFORMATION
  Report Type: 
  Country: None (occurrence: None)
  Receive Date: 20061207
  Receipt Date: 20061127
  Transmission Date: 20070319
  Serious: Yes (Hospitalization)
  Sender: FDA-Public Use
  Company Number: PHRM2006FR03189

PATIENT
  Age: 42 Year
  Sex: Male

DRUGS (8)
  1. NEORAL [Suspect]
     Indication: RENAL TRANSPLANT
     Dosage: 100 MG, BID
     Route: 048
     Dates: end: 20060410
  2. NEORAL [Suspect]
     Dosage: 75 MG, BID
     Route: 048
     Dates: start: 20060411
  3. COLCHICINE [Suspect]
     Indication: GOUT
     Dosage: 3DF 1ST D, 2DF DURING 3 D, 1 DF QD
     Route: 048
     Dates: start: 20060322, end: 20060410
  4. CORTANCYL [Concomitant]
     Indication: RENAL TRANSPLANT
     Route: 048
  5. CELLCEPT [Concomitant]
     Indication: RENAL TRANSPLANT
     Route: 048
     Dates: start: 19970101
  6. AMLOR [Concomitant]
  7. TENORMIN [Concomitant]
  8. OMEPRAZOLE [Concomitant]

REACTIONS (21)
  - AREFLEXIA [None]
  - ARTHRALGIA [None]
  - BLOOD SODIUM DECREASED [None]
  - CHOLESTASIS [None]
  - COLLAGEN DISORDER [None]
  - CYTOLYTIC HEPATITIS [None]
  - DRUG INTERACTION POTENTIATION [None]
  - DRUG LEVEL INCREASED [None]
  - ELECTROMYOGRAM ABNORMAL [None]
  - EYELID PTOSIS [None]
  - FACIAL PARESIS [None]
  - GUILLAIN-BARRE SYNDROME [None]
  - HALLUCINATION [None]
  - HYPOTONIA [None]
  - INFECTION [None]
  - LEUKOCYTOSIS [None]
  - PARAESTHESIA [None]
  - POLYARTHRITIS [None]
  - PYREXIA [None]
  - RADICULOPATHY [None]
  - SPEECH DISORDER [None]
